FAERS Safety Report 4287300-3 (Version None)
Quarter: 2004Q1

REPORT INFORMATION
  Report Type: 
  Country: None (occurrence: None)
  Receive Date: 20040205
  Receipt Date: 20040128
  Transmission Date: 20041129
  Serious: Yes (Hospitalization)
  Sender: FDA-Public Use
  Company Number: 2004UW01486

PATIENT
  Sex: Male

DRUGS (2)
  1. SEROQUEL [Suspect]
  2. RISPERDAL [Concomitant]

REACTIONS (1)
  - RENAL FAILURE [None]
